FAERS Safety Report 6909009-7 (Version None)
Quarter: 2010Q3

REPORT INFORMATION
  Report Type: 
  Country: None (occurrence: None)
  Receive Date: 20100805
  Receipt Date: 20100728
  Transmission Date: 20110219
  Serious: Yes (Death, Hospitalization, Other)
  Sender: FDA-Public Use
  Company Number: KR-BAYER-201028582GPV

PATIENT
  Age: 79 Year
  Sex: Male
  Weight: 53 kg

DRUGS (16)
  1. NEXAVAR [Suspect]
     Indication: GASTROINTESTINAL STROMAL TUMOUR
     Dosage: TOTAL DAILY DOSE: 800 MG  UNIT DOSE: 200 MG
     Route: 048
     Dates: start: 20100519, end: 20100601
  2. NEXAVAR [Suspect]
     Dosage: TOTAL DAILY DOSE: 400 MG  UNIT DOSE: 200 MG
     Route: 048
     Dates: start: 20100616
  3. NEXAVAR [Suspect]
     Dosage: TOTAL DAILY DOSE: 400 MG  UNIT DOSE: 200 MG
     Route: 048
     Dates: end: 20100714
  4. KALIMATE [Concomitant]
     Indication: PROPHYLAXIS
     Dosage: TOTAL DAILY DOSE: 30 G
     Route: 048
     Dates: start: 20090810
  5. ALDACTONE [Concomitant]
     Indication: PLEURAL EFFUSION
     Route: 048
     Dates: start: 20100611, end: 20100623
  6. ALDACTONE [Concomitant]
     Dosage: TOTAL DAILY DOSE: 25 MG
     Route: 048
     Dates: start: 20090325, end: 20100601
  7. ALDACTONE [Concomitant]
     Dosage: TOTAL DAILY DOSE: 25 MG
     Route: 048
     Dates: start: 20100611, end: 20100612
  8. LASIX [Concomitant]
     Indication: PLEURAL EFFUSION
     Dosage: TOTAL DAILY DOSE: 40 MG
     Route: 048
     Dates: start: 20090227, end: 20100601
  9. LASIX [Concomitant]
     Route: 048
     Dates: start: 20100611, end: 20100623
  10. LASIX [Concomitant]
     Dosage: TOTAL DAILY DOSE: 40 MG
     Route: 048
     Dates: start: 20100611, end: 20100612
  11. MEGACE [Concomitant]
     Route: 048
     Dates: start: 20090101
  12. MAGNESIUM OXIDE [Concomitant]
     Indication: CONSTIPATION
     Dosage: TOTAL DAILY DOSE: 750 MG
     Route: 048
     Dates: start: 20100510
  13. OXYCONTIN [Concomitant]
     Indication: PAIN
     Dosage: TOTAL DAILY DOSE: 40 MG
     Route: 048
     Dates: start: 20091007
  14. IR CODON [Concomitant]
     Dosage: TOTAL DAILY DOSE: 15 MG
  15. STALEVO 100 [Concomitant]
     Dates: start: 20100324
  16. BARRIER CREAM [Concomitant]
     Dates: start: 20100101

REACTIONS (5)
  - DYSPNOEA [None]
  - HYPOXIA [None]
  - PLEURAL EFFUSION [None]
  - PNEUMONIA [None]
  - PYREXIA [None]
